APPROVED DRUG PRODUCT: ABILIFY
Active Ingredient: ARIPIPRAZOLE
Strength: 1MG/ML **Federal Register determination that product was not discontinued or withdrawn for safety or effectiveness reasons**
Dosage Form/Route: SOLUTION;ORAL
Application: N021713 | Product #001
Applicant: OTSUKA PHARMACEUTICAL DEVELOPMENT AND COMMERCIALIZATION INC
Approved: Dec 10, 2004 | RLD: Yes | RS: No | Type: DISCN

PATENTS:
Patent 8759350 | Expires: Mar 2, 2027